FAERS Safety Report 7597733-5 (Version None)
Quarter: 2011Q3

REPORT INFORMATION
  Report Type: 
  Country: None (occurrence: None)
  Receive Date: 20110708
  Receipt Date: 20110629
  Transmission Date: 20111222
  Serious: Yes (Death, Life-Threatening)
  Sender: FDA-Public Use
  Company Number: JP-GLAXOSMITHKLINE-B0716450A

PATIENT
  Sex: Male
  Weight: 63 kg

DRUGS (18)
  1. ALKERAN [Suspect]
     Indication: CORD BLOOD TRANSPLANT THERAPY
     Dosage: 85MG PER DAY
     Route: 042
     Dates: start: 20100411, end: 20100412
  2. FLUDARABINE PHOSPHATE [Concomitant]
     Indication: CORD BLOOD TRANSPLANT THERAPY
     Dosage: 50MG PER DAY
     Route: 042
     Dates: start: 20100407, end: 20100411
  3. METHOTREXATE [Concomitant]
     Indication: IMMUNOSUPPRESSION
     Dosage: 15MG PER DAY
     Route: 065
     Dates: start: 20100329, end: 20100329
  4. FUNGUARD [Concomitant]
     Route: 042
     Dates: start: 20100315, end: 20100807
  5. METHOTREXATE [Concomitant]
     Dosage: 10MG PER DAY
     Route: 065
     Dates: start: 20100420, end: 20100420
  6. DEPAKENE [Concomitant]
     Dosage: 600MG PER DAY
     Route: 048
     Dates: start: 20100406, end: 20100413
  7. KYTRIL [Concomitant]
     Dosage: 3MG PER DAY
     Route: 042
     Dates: start: 20100407, end: 20100413
  8. BUSULFAN [Concomitant]
     Indication: CORD BLOOD TRANSPLANT THERAPY
     Dosage: 200MG PER DAY
     Route: 042
     Dates: start: 20100407, end: 20100411
  9. PREDNISOLONE [Concomitant]
     Indication: IMMUNOSUPPRESSION
     Route: 065
     Dates: start: 20100616, end: 20100701
  10. PREDNISOLONE [Concomitant]
     Indication: IMMUNOSUPPRESSION
     Dosage: 3MG PER DAY
     Route: 065
     Dates: start: 20100629, end: 20100701
  11. SOLU-MEDROL [Concomitant]
     Indication: IMMUNOSUPPRESSION
     Dosage: 40MG PER DAY
     Route: 042
     Dates: start: 20100413, end: 20100902
  12. METHOTREXATE [Concomitant]
     Dosage: 10MG PER DAY
     Route: 065
     Dates: start: 20100417, end: 20100417
  13. CYCLOSPORINE [Concomitant]
     Indication: IMMUNOSUPPRESSION
     Dosage: 250MG PER DAY
     Route: 042
     Dates: start: 20100412, end: 20100811
  14. NEORAL [Concomitant]
     Indication: IMMUNOSUPPRESSION
     Dosage: 200MG PER DAY
     Route: 048
     Dates: start: 20100526, end: 20100701
  15. PROMAC [Concomitant]
     Dosage: 150MG PER DAY
     Route: 048
     Dates: start: 20100324, end: 20100424
  16. METHOTREXATE [Concomitant]
     Dosage: 15MG PER DAY
     Route: 065
     Dates: start: 20100415, end: 20100415
  17. LEVOFLOXACIN [Concomitant]
     Route: 048
     Dates: start: 20100408, end: 20100424
  18. DORIPENEM MONOHYDRATE [Concomitant]
     Route: 042
     Dates: start: 20100315, end: 20100902

REACTIONS (9)
  - LIVER DISORDER [None]
  - PULMONARY ALVEOLAR HAEMORRHAGE [None]
  - GASTROINTESTINAL HAEMORRHAGE [None]
  - ACUTE RESPIRATORY DISTRESS SYNDROME [None]
  - VIRAL HAEMORRHAGIC CYSTITIS [None]
  - CYTOMEGALOVIRUS VIRAEMIA [None]
  - PNEUMONIA [None]
  - RENAL FAILURE ACUTE [None]
  - LUNG DISORDER [None]
